FAERS Safety Report 18215070 (Version 1)
Quarter: 2020Q3

REPORT INFORMATION
  Report Type: Spontaneous
  Country: JP (occurrence: JP)
  Receive Date: 20200831
  Receipt Date: 20200831
  Transmission Date: 20201103
  Serious: Yes (Other)
  Sender: FDA-Public Use
  Company Number: JP-NOVOPROD-679032

PATIENT
  Age: 41 Year
  Sex: Female

DRUGS (1)
  1. NOVOSEVEN [Suspect]
     Active Substance: COAGULATION FACTOR VIIA RECOMBINANT HUMAN
     Indication: GENITAL HAEMORRHAGE
     Dosage: UNK
     Route: 065

REACTIONS (2)
  - Intestinal ischaemia [Unknown]
  - Off label use [Unknown]
